FAERS Safety Report 16582849 (Version 1)
Quarter: 2019Q3

REPORT INFORMATION
  Report Type: Spontaneous
  Country: US (occurrence: US)
  Receive Date: 20190717
  Receipt Date: 20190717
  Transmission Date: 20191004
  Serious: No
  Sender: FDA-Public Use
  Company Number: US-JNJFOC-20190705590

PATIENT
  Age: 76 Year
  Sex: Male
  Weight: 106.69 kg

DRUGS (2)
  1. TYLENOL [Suspect]
     Active Substance: ACETAMINOPHEN
     Route: 048
     Dates: start: 20190703
  2. TYLENOL [Suspect]
     Active Substance: ACETAMINOPHEN
     Indication: OSTEOARTHRITIS
     Dosage: 2 CAPLETS 3X DAILY
     Route: 048

REACTIONS (2)
  - Incorrect dose administered [Unknown]
  - Product contamination physical [Unknown]

NARRATIVE: CASE EVENT DATE: 20190703
